FAERS Safety Report 14947627 (Version 1)
Quarter: 2018Q2

REPORT INFORMATION
  Report Type: Spontaneous
  Country: US (occurrence: US)
  Receive Date: 20180508
  Receipt Date: 20180508
  Transmission Date: 20180711
  Serious: No
  Sender: FDA-Public Use
  Company Number: None

PATIENT
  Age: 40 Year
  Sex: Female

DRUGS (2)
  1. KETOROLAC [Suspect]
     Active Substance: KETOROLAC\KETOROLAC TROMETHAMINE
     Indication: MIGRAINE
     Route: 048
     Dates: start: 20180507, end: 20180507
  2. METHIMAZOLE 5MG [Concomitant]
     Dates: start: 20080501

REACTIONS (6)
  - Diarrhoea [None]
  - Nausea [None]
  - Paraesthesia [None]
  - Chills [None]
  - Tremor [None]
  - Panic attack [None]

NARRATIVE: CASE EVENT DATE: 20180507
